FAERS Safety Report 8032489-3 (Version None)
Quarter: 2012Q1

REPORT INFORMATION
  Report Type: 
  Country: None (occurrence: None)
  Receive Date: 20120110
  Receipt Date: 20120103
  Transmission Date: 20120608
  Serious: Yes (Other)
  Sender: FDA-Public Use
  Company Number: BR-JNJFOC-20111212251

PATIENT
  Sex: Male
  Weight: 76 kg

DRUGS (4)
  1. TPN [Suspect]
     Indication: PRODUCT USED FOR UNKNOWN INDICATION
     Route: 048
     Dates: end: 20111226
  2. TYLENOL (CAPLET) [Suspect]
     Route: 048
  3. TPN [Suspect]
     Route: 048
  4. TYLENOL (CAPLET) [Suspect]
     Indication: HEADACHE
     Route: 048
     Dates: start: 20111226, end: 20111226

REACTIONS (2)
  - TENSION [None]
  - PRIAPISM [None]
